FAERS Safety Report 13012184 (Version 1)
Quarter: 2016Q4

REPORT INFORMATION
  Report Type: Spontaneous
  Country: US (occurrence: US)
  Receive Date: 20161208
  Receipt Date: 20161208
  Transmission Date: 20170207
  Serious: No
  Sender: FDA-Public Use
  Company Number: None

PATIENT
  Age: 73 Year
  Sex: Male
  Weight: 57.2 kg

DRUGS (2)
  1. TARCEVA [Suspect]
     Active Substance: ERLOTINIB HYDROCHLORIDE
     Indication: NEOPLASM MALIGNANT
     Route: 048
     Dates: start: 20160410
  2. CAPECITABINE 500MG MYLAN [Suspect]
     Active Substance: CAPECITABINE
     Dosage: BIDX14 DAYS
     Route: 048
     Dates: start: 20160410

REACTIONS (7)
  - Rash [None]
  - Abdominal discomfort [None]
  - Dizziness [None]
  - Asthenia [None]
  - Pruritus [None]
  - Diarrhoea [None]
  - Weight decreased [None]
